FAERS Safety Report 9723699 (Version 1)
Quarter: 2013Q4

REPORT INFORMATION
  Report Type: Spontaneous
  Country: GB (occurrence: GB)
  Receive Date: 20131202
  Receipt Date: 20131202
  Transmission Date: 20140711
  Serious: Yes (Other)
  Sender: FDA-Public Use
  Company Number: GB-GLAXOSMITHKLINE-B0949475A

PATIENT
  Sex: Female

DRUGS (1)
  1. OMACOR [Suspect]
     Indication: SYSTEMIC LUPUS ERYTHEMATOSUS
     Dosage: 1000MG TWICE PER DAY
     Route: 048

REACTIONS (2)
  - Breast cancer [Unknown]
  - Off label use [Unknown]
